FAERS Safety Report 25287876 (Version 2)
Quarter: 2025Q2

REPORT INFORMATION
  Report Type: Spontaneous
  Country: DE (occurrence: DE)
  Receive Date: 20250509
  Receipt Date: 20250516
  Transmission Date: 20250717
  Serious: Yes (Other)
  Sender: NOVARTIS
  Company Number: DE-SANDOZ-SDZ2025DE028782

PATIENT
  Age: 53 Year
  Sex: Female

DRUGS (2)
  1. ROSUVASTATIN [Suspect]
     Active Substance: ROSUVASTATIN
     Indication: Product used for unknown indication
     Route: 065
  2. KISQALI [Suspect]
     Active Substance: RIBOCICLIB SUCCINATE
     Indication: Product used for unknown indication
     Dosage: 400 MG, QD (STRENGTH: 200MG) DAILY DOSE: 400MG (DAILY DOSE: TWICE DAILY)
     Route: 065
     Dates: start: 20250408

REACTIONS (5)
  - Leukopenia [Unknown]
  - Diabetes mellitus [Unknown]
  - Skin disorder [Unknown]
  - Asthenia [Unknown]
  - Constipation [Unknown]
